FAERS Safety Report 25990134 (Version 2)
Quarter: 2025Q4

REPORT INFORMATION
  Report Type: Report from Study
  Country: CA (occurrence: CA)
  Receive Date: 20251103
  Receipt Date: 20251107
  Transmission Date: 20260118
  Serious: Yes (Other)
  Sender: TAKEDA
  Company Number: CA-TAKEDA-2025TUS096019

PATIENT
  Age: 43 Year
  Sex: Female

DRUGS (11)
  1. VEDOLIZUMAB [Suspect]
     Active Substance: VEDOLIZUMAB
     Indication: Crohn^s disease
     Dosage: 300 MILLIGRAM
     Dates: start: 20251006, end: 20251006
  2. PANTOPRAZOLE SODIUM [Suspect]
     Active Substance: PANTOPRAZOLE SODIUM
     Indication: Product used for unknown indication
     Dosage: UNK
  3. VENTOLIN [Concomitant]
     Active Substance: ALBUTEROL SULFATE
     Dosage: UNK
  4. RUPATADINE FUMARATE [Concomitant]
     Active Substance: RUPATADINE FUMARATE
     Indication: Multiple allergies
     Dosage: UNK
  5. AVENTYL [Concomitant]
     Active Substance: NORTRIPTYLINE HYDROCHLORIDE
     Dosage: UNK
  6. ANDROGEL [Concomitant]
     Active Substance: TESTOSTERONE
     Dosage: UNK
  7. OMNARIS [Concomitant]
     Active Substance: CICLESONIDE
     Dosage: UNK
  8. NIFEDIPINE [Concomitant]
     Active Substance: NIFEDIPINE
     Dosage: UNK
  9. PULMICORT TURBUHALER [Concomitant]
     Active Substance: BUDESONIDE
     Dosage: UNK
  10. LOVENOX [Concomitant]
     Active Substance: ENOXAPARIN SODIUM
     Indication: Bedridden
     Dosage: UNK
  11. EPIPEN [Concomitant]
     Active Substance: EPINEPHRINE
     Indication: Emergency care
     Dosage: UNK

REACTIONS (2)
  - Crohn^s disease [Unknown]
  - Treatment failure [Unknown]
